FAERS Safety Report 18112613 (Version 1)
Quarter: 2020Q3

REPORT INFORMATION
  Report Type: Spontaneous
  Country: IT (occurrence: IT)
  Receive Date: 20200805
  Receipt Date: 20200805
  Transmission Date: 20201103
  Serious: Yes (Death, Life-Threatening, Hospitalization, Other)
  Sender: FDA-Public Use
  Company Number: IT-ACCORD-194230

PATIENT
  Age: 52 Year
  Sex: Female

DRUGS (6)
  1. HYDROXYCHLOROQUINE [Concomitant]
     Active Substance: HYDROXYCHLOROQUINE
     Indication: COVID-19 PNEUMONIA
     Dates: start: 20200302
  2. COLCHICINE. [Concomitant]
     Active Substance: COLCHICINE
     Indication: COVID-19 PNEUMONIA
     Dosage: ON DAY 8
     Dates: start: 20200310, end: 20200310
  3. LOPINAVIR/RITONAVIR [Interacting]
     Active Substance: LOPINAVIR\RITONAVIR
     Indication: COVID-19 PNEUMONIA
     Dates: start: 20200302, end: 20200311
  4. COLCHICINE. [Concomitant]
     Active Substance: COLCHICINE
     Indication: COVID-19 PNEUMONIA
     Dosage: THERE AFTER
     Dates: start: 20200311
  5. TACROLIMUS. [Suspect]
     Active Substance: TACROLIMUS
     Indication: IMMUNOSUPPRESSANT DRUG THERAPY
     Dates: start: 201907, end: 20200302
  6. MYCOPHENOLIC ACID. [Concomitant]
     Active Substance: MYCOPHENOLIC ACID
     Indication: IMMUNOSUPPRESSANT DRUG THERAPY
     Dates: end: 20200302

REACTIONS (5)
  - Drug interaction [Unknown]
  - Off label use [Unknown]
  - Hepatic failure [Recovered/Resolved]
  - Drug level increased [Recovered/Resolved]
  - Acute kidney injury [Recovered/Resolved]

NARRATIVE: CASE EVENT DATE: 202003
